FAERS Safety Report 7800179-5 (Version None)
Quarter: 2011Q4

REPORT INFORMATION
  Report Type: 
  Country: None (occurrence: None)
  Receive Date: 20111006
  Receipt Date: 20110930
  Transmission Date: 20120403
  Serious: Yes (Other)
  Sender: FDA-Public Use
  Company Number: US-MERCK-1110USA00457

PATIENT
  Sex: Female

DRUGS (2)
  1. FOSAMAX [Suspect]
     Route: 048
     Dates: start: 20031001, end: 20080101
  2. FOSAMAX [Suspect]
     Route: 048
     Dates: start: 20031001, end: 20080101

REACTIONS (1)
  - FEMUR FRACTURE [None]
